FAERS Safety Report 18415288 (Version 1)
Quarter: 2020Q4

REPORT INFORMATION
  Report Type: Spontaneous
  Country: FR (occurrence: FR)
  Receive Date: 20201022
  Receipt Date: 20201022
  Transmission Date: 20210114
  Serious: Yes (Death, Life-Threatening, Hospitalization)
  Sender: FDA-Public Use
  Company Number: FR-TEVA-2020-FR-1840235

PATIENT
  Age: 66 Year
  Sex: Male
  Weight: 76 kg

DRUGS (10)
  1. ALIMTA [Suspect]
     Active Substance: PEMETREXED DISODIUM
     Indication: LUNG ADENOCARCINOMA STAGE IV
     Dosage: 980MILLIGRAM
     Route: 041
     Dates: start: 20180510, end: 20180510
  2. INNOHEP [Concomitant]
     Active Substance: TINZAPARIN SODIUM
  3. INEXIUM 40 MG, COMPRIME GASTRO-RESISTANT [Concomitant]
     Active Substance: ESOMEPRAZOLE MAGNESIUM
  4. ESIDREX [Concomitant]
     Active Substance: HYDROCHLOROTHIAZIDE
  5. CARBOPLATINE [Suspect]
     Active Substance: CARBOPLATIN
     Indication: LUNG ADENOCARCINOMA STAGE IV
     Dosage: 680MILLIGRAM
     Route: 041
     Dates: start: 20180510, end: 20180510
  6. KARDEGIC [Concomitant]
     Active Substance: ASPIRIN DL-LYSINE
  7. SPECIAFOLDINE 0,4 MG, COMPRIME [Concomitant]
     Active Substance: FOLIC ACID
  8. TAHOR [Concomitant]
     Active Substance: ATORVASTATIN CALCIUM
  9. NEURONTIN [Concomitant]
     Active Substance: GABAPENTIN
  10. VALSARTAN. [Concomitant]
     Active Substance: VALSARTAN

REACTIONS (6)
  - Diarrhoea [Recovered/Resolved]
  - Abdominal pain [Recovered/Resolved]
  - Pancytopenia [Recovered/Resolved]
  - Nausea [Recovered/Resolved]
  - General physical health deterioration [Recovered/Resolved]
  - Hyponatraemia [Recovered/Resolved]

NARRATIVE: CASE EVENT DATE: 20180513
